FAERS Safety Report 12846437 (Version 1)
Quarter: 2016Q4

REPORT INFORMATION
  Report Type: Spontaneous
  Country: FR (occurrence: FR)
  Receive Date: 20161014
  Receipt Date: 20161014
  Transmission Date: 20170207
  Serious: Yes (Death, Life-Threatening, Other)
  Sender: FDA-Public Use
  Company Number: FR-ACCORD-044780

PATIENT
  Age: 54 Year
  Sex: Male

DRUGS (6)
  1. FLUOROURACIL. [Suspect]
     Active Substance: FLUOROURACIL
     Indication: SINUS CANCER METASTATIC
     Dates: start: 2015
  2. CISPLATIN. [Concomitant]
     Active Substance: CISPLATIN
  3. GEMCITABINE/GEMCITABINE HYDROCHLORIDE [Suspect]
     Active Substance: GEMCITABINE\GEMCITABINE HYDROCHLORIDE
     Indication: SINUS CANCER METASTATIC
     Dates: start: 2015
  4. FOLINIC ACID [Suspect]
     Active Substance: LEUCOVORIN
     Indication: SINUS CANCER METASTATIC
     Dates: start: 2015
  5. CARBOPLATIN. [Suspect]
     Active Substance: CARBOPLATIN
     Indication: SINUS CANCER METASTATIC
     Dates: start: 2015
  6. OXALIPLATIN. [Suspect]
     Active Substance: OXALIPLATIN
     Indication: SINUS CANCER METASTATIC
     Dates: start: 2015

REACTIONS (2)
  - Off label use [Unknown]
  - Drug ineffective [Unknown]
